FAERS Safety Report 4850919-2 (Version None)
Quarter: 2005Q4

REPORT INFORMATION
  Report Type: 
  Country: None (occurrence: None)
  Receive Date: 20051212
  Receipt Date: 20051129
  Transmission Date: 20060501
  Serious: Yes (Other)
  Sender: FDA-Public Use
  Company Number: GB-SANOFI-SYNTHELABO-A01200508376

PATIENT
  Sex: Male

DRUGS (2)
  1. XATRAL [Suspect]
     Indication: URINARY RETENTION
     Route: 048
     Dates: start: 20040106
  2. OMEPRAZOLE [Concomitant]
     Indication: DRUG USE FOR UNKNOWN INDICATION
     Route: 048

REACTIONS (1)
  - IRIS DISORDER [None]
